FAERS Safety Report 4939065-7 (Version None)
Quarter: 2006Q1

REPORT INFORMATION
  Report Type: 
  Country: None (occurrence: None)
  Receive Date: 20060306
  Receipt Date: 20060220
  Transmission Date: 20060701
  Serious: Yes (Hospitalization)
  Sender: FDA-Public Use
  Company Number: 2006-US-00834

PATIENT
  Age: 57 Year
  Sex: Female

DRUGS (1)
  1. CLOZAPINE [Suspect]
     Indication: SCHIZOPHRENIA, PARANOID TYPE
     Dosage: 400 MG, QD, ORAL
     Route: 048
     Dates: start: 20000201

REACTIONS (1)
  - CHRONIC OBSTRUCTIVE PULMONARY DISEASE [None]
